FAERS Safety Report 6655674-1 (Version None)
Quarter: 2010Q1

REPORT INFORMATION
  Report Type: 
  Country: None (occurrence: None)
  Receive Date: 20100326
  Receipt Date: 20100326
  Transmission Date: 20100710
  Serious: Yes (Disabling)
  Sender: FDA-Public Use
  Company Number: None

PATIENT
  Sex: Female
  Weight: 86.1834 kg

DRUGS (2)
  1. ZOCOR [Suspect]
     Indication: BLOOD CHOLESTEROL INCREASED
     Dosage: 80MG 1-DAY PILL
     Dates: start: 19940101, end: 20000101
  2. CRESTOR [Suspect]
     Dates: start: 20060101, end: 20080101

REACTIONS (4)
  - DEHYDRATION [None]
  - MUSCLE INJURY [None]
  - MUSCLE SPASMS [None]
  - MYALGIA [None]
